FAERS Safety Report 4303584-7 (Version None)
Quarter: 2004Q1

REPORT INFORMATION
  Report Type: 
  Country: None (occurrence: None)
  Receive Date: 20040223
  Receipt Date: 20040209
  Transmission Date: 20041129
  Serious: Yes (Death, Other)
  Sender: FDA-Public Use
  Company Number: SX04010016

PATIENT
  Age: 52 Year
  Sex: Female

DRUGS (5)
  1. XOPENEX [Suspect]
     Indication: ASTHMA
     Dosage: SEE IMAGE
     Route: 055
     Dates: start: 20031124, end: 20031125
  2. XOPENEX [Suspect]
     Indication: ASTHMA
     Dosage: SEE IMAGE
     Route: 055
     Dates: start: 20031129, end: 20031130
  3. CEPHALEXIN [Concomitant]
  4. ZYREXA [Concomitant]
  5. DIFLUCAN [Concomitant]

REACTIONS (7)
  - CARDIO-RESPIRATORY ARREST [None]
  - DRUG INTERACTION [None]
  - FUNGAL INFECTION [None]
  - HYPERSENSITIVITY [None]
  - INFLUENZA IMMUNISATION [None]
  - RASH [None]
  - VENTRICULAR FIBRILLATION [None]
